FAERS Safety Report 4611208-4 (Version None)
Quarter: 2005Q1

REPORT INFORMATION
  Report Type: 
  Country: None (occurrence: None)
  Receive Date: 20050316
  Receipt Date: 20050316
  Transmission Date: 20050727
  Serious: Yes (Hospitalization)
  Sender: FDA-Public Use
  Company Number: None

PATIENT
  Age: 70 Year
  Sex: Male
  Weight: 65.4 kg

DRUGS (12)
  1. CYCLOPHOSPHAMIDE [Suspect]
  2. DOXORUBICIN HCL [Suspect]
     Indication: NON-HODGKIN'S LYMPHOMA
     Dosage: VARIOUS, CYCLE, INTRAVENOUS
     Route: 042
  3. VINCRISTINE [Suspect]
     Indication: NON-HODGKIN'S LYMPHOMA
     Dosage: VARIOUS, CYCLE, INTRAVEN
     Route: 042
  4. OMEPRAZOLE [Concomitant]
  5. NA POLYSTYRENE SULF [Concomitant]
  6. ATENOLOL [Concomitant]
  7. PREDNISONE [Concomitant]
  8. PROCHLORPERAZINE MALEATE [Concomitant]
  9. HYDROCHLOROTHIAZIDE [Concomitant]
  10. MIRTAZAPINE [Concomitant]
  11. LACTULOSE [Concomitant]
  12. FLUTICASONE PROP [Concomitant]

REACTIONS (1)
  - FEBRILE NEUTROPENIA [None]
